FAERS Safety Report 4616549-2 (Version None)
Quarter: 2005Q2

REPORT INFORMATION
  Report Type: 
  Country: None (occurrence: None)
  Receive Date: 20050311
  Receipt Date: 20050120
  Transmission Date: 20051028
  Serious: No
  Sender: FDA-Public Use
  Company Number: M03-341-179

PATIENT
  Age: 47 Year
  Sex: Male

DRUGS (5)
  1. VELCADE [Suspect]
     Indication: MULTIPLE MYELOMA
     Dosage: IV BOLUS;  2.6 MG, IV BOLUS
     Route: 040
     Dates: start: 20030707, end: 20031103
  2. VELCADE [Suspect]
     Indication: MULTIPLE MYELOMA
     Dosage: IV BOLUS;  2.6 MG, IV BOLUS
     Route: 040
     Dates: start: 20040126
  3. ZOMETA [Concomitant]
  4. WARFARIN SODIUM [Concomitant]
  5. DEXAMETHASONE [Concomitant]

REACTIONS (2)
  - CRANIAL NEUROPATHY [None]
  - DIPLOPIA [None]
